FAERS Safety Report 13779473 (Version 1)
Quarter: 2017Q3

REPORT INFORMATION
  Report Type: Spontaneous
  Country: US (occurrence: US)
  Receive Date: 20170721
  Receipt Date: 20170721
  Transmission Date: 20171127
  Serious: No
  Sender: FDA-Public Use
  Company Number: US-GLAXOSMITHKLINE-US2017GSK112701

PATIENT
  Sex: Male

DRUGS (1)
  1. MUPIROCIN. [Suspect]
     Active Substance: MUPIROCIN
     Indication: LIMB INJURY

REACTIONS (1)
  - Drug ineffective [Unknown]
